FAERS Safety Report 8180186-6 (Version None)
Quarter: 2012Q1

REPORT INFORMATION
  Report Type: 
  Country: None (occurrence: None)
  Receive Date: 20120302
  Receipt Date: 20120222
  Transmission Date: 20120608
  Serious: Yes (Other)
  Sender: FDA-Public Use
  Company Number: US-BAYER-201039677NA

PATIENT
  Age: 38 Year
  Sex: Female
  Weight: 72.562 kg

DRUGS (2)
  1. YAZ [Suspect]
     Indication: CONTRACEPTION
     Dosage: UNK
     Route: 048
     Dates: start: 20070901, end: 20071101
  2. IBUPROFEN [Concomitant]

REACTIONS (1)
  - DEEP VEIN THROMBOSIS [None]
